FAERS Safety Report 5897372-8 (Version None)
Quarter: 2008Q3

REPORT INFORMATION
  Report Type: 
  Country: None (occurrence: None)
  Receive Date: 20080915
  Receipt Date: 20070904
  Transmission Date: 20090109
  Serious: Yes (Hospitalization)
  Sender: FDA-Public Use
  Company Number: PHEH2007US05064

PATIENT
  Age: 70 Year
  Sex: Female

DRUGS (5)
  1. ZELNORM [Suspect]
     Indication: CONSTIPATION
     Dosage: 2 MG, BID, ORAL
     Route: 048
     Dates: start: 20060101, end: 20070407
  2. ATACAND [Concomitant]
  3. NEXIUM [Concomitant]
  4. RELAFEN [Concomitant]
  5. ZOCOR [Concomitant]

REACTIONS (3)
  - ANGINA PECTORIS [None]
  - CATHETERISATION CARDIAC [None]
  - DYSPNOEA [None]
